FAERS Safety Report 4506564-1 (Version None)
Quarter: 2004Q4

REPORT INFORMATION
  Report Type: 
  Country: None (occurrence: None)
  Receive Date: 20041122
  Receipt Date: 20040905
  Transmission Date: 20050328
  Serious: Yes (Hospitalization)
  Sender: FDA-Public Use
  Company Number: AT-BRISTOL-MYERS SQUIBB COMPANY-12759254

PATIENT
  Age: 46 Year
  Sex: Male
  Weight: 93 kg

DRUGS (8)
  1. ABILIFY [Suspect]
     Indication: PSYCHOTIC DISORDER
     Dosage: 15 MG TO 15-AUG-2004/INC. 30 MG 16-AUG-2004-24-AUG-2004/DECR.15 MG ON 25-AUG-2004/DISC.
     Route: 048
     Dates: start: 20040812
  2. BIPERIDEN HYDROCHLORIDE TAB [Concomitant]
     Route: 048
     Dates: start: 20040810
  3. CLONAZEPAM [Concomitant]
     Dosage: INITIATED 12-AUG-2004 1.5 MG/INC. TO 3 MG 13-AUG-2004/DEC TO 1 MG 15-AUG-2004/INC. 6 MG 24-AUG-04.
     Route: 048
     Dates: start: 20040812, end: 20040825
  4. CLOZAPINE [Concomitant]
     Dosage: 500 MG TIL 23-AUG-2004/600 MG 24-AUG-2004/800 MG 25-AUG-2004.
     Route: 048
     Dates: start: 20040810
  5. LORAZEPAM [Concomitant]
     Route: 048
     Dates: start: 20040817
  6. OXAZEPAM [Concomitant]
     Dosage: 250 MG 16-AUG-2004 TO 17-AUG-2004/50 MG 17-AUG-2004
     Route: 048
     Dates: start: 20040815
  7. RISPERIDONE [Concomitant]
     Dosage: 4 MG 10-AUG-2004 TO 11-AUG-2004/2 MG 12-AUG/4 MG 24-AUG/6 MG 25-AUG-2004.
     Route: 048
     Dates: start: 20040810
  8. VALPROIC ACID [Concomitant]
     Dosage: TILL 15-AUG-2004/1500 MG 16-AUG-2004 TO 17-AUG-2004/2000 MG 18-AUG-2004.
     Route: 048
     Dates: start: 20040810

REACTIONS (2)
  - AGITATION [None]
  - HOMICIDAL IDEATION [None]
